FAERS Safety Report 24266274 (Version 1)
Quarter: 2024Q3

REPORT INFORMATION
  Report Type: Spontaneous
  Country: PT (occurrence: PT)
  Receive Date: 20240830
  Receipt Date: 20240830
  Transmission Date: 20241017
  Serious: Yes (Other)
  Sender: IPCA
  Company Number: PT-EMA-DD-20240820-7482715-101616

PATIENT

DRUGS (2)
  1. ALLOPURINOL [Suspect]
     Active Substance: ALLOPURINOL
     Indication: Product used for unknown indication
     Dosage: UNK (TAKING FOR SEVERAL YEARS)
     Route: 065
  2. ALLOPURINOL [Suspect]
     Active Substance: ALLOPURINOL
     Dosage: UNK (INCREASED HIS DOSE ABOUT 4 WEEKS AGO)
     Route: 065

REACTIONS (5)
  - Drug reaction with eosinophilia and systemic symptoms [Recovering/Resolving]
  - Vomiting [Unknown]
  - Hyperglycaemia [Unknown]
  - Renal impairment [Unknown]
  - Cholestasis [Unknown]
